FAERS Safety Report 17588302 (Version 1)
Quarter: 2020Q3

REPORT INFORMATION
  Report Type: Spontaneous
  Country: US (occurrence: US)
  Receive Date: 20200327
  Receipt Date: 20200327
  Transmission Date: 20201104
  Serious: Yes (Other)
  Sender: FDA-Public Use
  Company Number: NVSC2020US083139

PATIENT
  Sex: Female

DRUGS (1)
  1. BROLUCIZUMAB. [Suspect]
     Active Substance: BROLUCIZUMAB
     Indication: NEOVASCULAR AGE-RELATED MACULAR DEGENERATION
     Dosage: 6 MG, QMO
     Route: 047
     Dates: start: 20200223, end: 20200309

REACTIONS (3)
  - Uveitis [Recovering/Resolving]
  - Eye pain [Unknown]
  - Visual impairment [Unknown]
